FAERS Safety Report 9614099 (Version 2)
Quarter: 2013Q4

REPORT INFORMATION
  Report Type: Report from Study
  Country: CA (occurrence: CA)
  Receive Date: 20131011
  Receipt Date: 20131212
  Transmission Date: 20140711
  Serious: Yes (Other)
  Sender: FDA-Public Use
  Company Number: CA-ROCHE-1287758

PATIENT
  Age: 52 Year
  Sex: Male
  Weight: 98.9 kg

DRUGS (11)
  1. RITUXAN [Suspect]
     Indication: RHEUMATOID ARTHRITIS
     Route: 042
     Dates: start: 20111209, end: 20130219
  2. PREDNISONE [Concomitant]
  3. ELTROXIN [Concomitant]
     Indication: HYPOTHYROIDISM
  4. PREVACID [Concomitant]
     Indication: GASTROOESOPHAGEAL REFLUX DISEASE
     Route: 048
  5. OXYCOCET [Concomitant]
  6. TYLENOL [Concomitant]
     Route: 048
     Dates: start: 20111209
  7. BENADRYL (CANADA) [Concomitant]
     Route: 048
     Dates: start: 20111209
  8. SOLU-MEDROL [Concomitant]
     Route: 042
     Dates: start: 20111209
  9. MORPHINE [Concomitant]
  10. MS CONTIN [Concomitant]
     Indication: RHEUMATOID ARTHRITIS
     Route: 048
  11. VOLTAREN SR [Concomitant]
     Indication: RHEUMATOID ARTHRITIS
     Route: 048

REACTIONS (7)
  - Computerised tomogram thorax abnormal [Recovered/Resolved]
  - Lung disorder [Unknown]
  - Hot flush [Recovered/Resolved]
  - Pain [Recovering/Resolving]
  - Musculoskeletal stiffness [Recovering/Resolving]
  - Hunger [Unknown]
  - Pain in extremity [Recovering/Resolving]
